FAERS Safety Report 8074208-0 (Version None)
Quarter: 2012Q1

REPORT INFORMATION
  Report Type: 
  Country: None (occurrence: None)
  Receive Date: 20120126
  Receipt Date: 20120119
  Transmission Date: 20120608
  Serious: Yes (Other)
  Sender: FDA-Public Use
  Company Number: CA-PFIZER INC-2011089553

PATIENT
  Age: 68 Year
  Sex: Female
  Weight: 66 kg

DRUGS (7)
  1. EFFEXOR XR [Suspect]
     Indication: DEPRESSION
     Dosage: 75 MG, 1X/DAILY
     Dates: start: 20090101, end: 20110401
  2. SYNTHROID [Concomitant]
     Indication: HYPOTHYROIDISM
     Dosage: 0.088 MG, 1X/DAY
     Dates: start: 20110401
  3. LEVOTHYROXINE SODIUM [Concomitant]
     Dosage: 1 MG DAILY
     Dates: start: 20110101
  4. EFFEXOR XR [Suspect]
     Dosage: 37.5 MG, 1X/DAY
     Dates: start: 20110401, end: 20110426
  5. SYNTHROID [Concomitant]
     Dosage: 1 MG, 1X/DAY
     Dates: start: 20110101
  6. LEVOTHYROXINE SODIUM [Concomitant]
     Indication: HYPOTHYROIDISM
     Dosage: 0.1 MG, ALTERNATE DAY
     Dates: start: 19930101, end: 20110401
  7. CENTRUM [Concomitant]
     Indication: ROUTINE HEALTH MAINTENANCE
     Dosage: UNK

REACTIONS (15)
  - TINNITUS [None]
  - ANXIETY [None]
  - NAUSEA [None]
  - EMOTIONAL DISTRESS [None]
  - BALANCE DISORDER [None]
  - SUICIDAL IDEATION [None]
  - DIZZINESS [None]
  - DISTURBANCE IN ATTENTION [None]
  - FATIGUE [None]
  - ASTHENIA [None]
  - NEGATIVE THOUGHTS [None]
  - WITHDRAWAL SYNDROME [None]
  - PERSONALITY CHANGE [None]
  - CRYING [None]
  - THINKING ABNORMAL [None]
